FAERS Safety Report 25392782 (Version 1)
Quarter: 2025Q2

REPORT INFORMATION
  Report Type: Spontaneous
  Country: JP (occurrence: JP)
  Receive Date: 20250603
  Receipt Date: 20250603
  Transmission Date: 20250717
  Serious: Yes (Other)
  Sender: NOVARTIS
  Company Number: JP-002147023-NVSJ2025JP005817

PATIENT
  Age: 1 Year
  Sex: Female

DRUGS (4)
  1. LETROZOLE [Suspect]
     Active Substance: LETROZOLE
     Indication: Albright^s disease
     Route: 048
  2. LETROZOLE [Suspect]
     Active Substance: LETROZOLE
     Indication: Fibrous dysplasia of bone
  3. LETROZOLE [Suspect]
     Active Substance: LETROZOLE
     Indication: Cafe au lait spots
  4. LETROZOLE [Suspect]
     Active Substance: LETROZOLE
     Indication: Precocious puberty

REACTIONS (3)
  - Fibrous dysplasia of bone [Unknown]
  - Disease progression [Unknown]
  - Off label use [Unknown]
